FAERS Safety Report 4279930-X (Version None)
Quarter: 2004Q1

REPORT INFORMATION
  Report Type: 
  Country: None (occurrence: None)
  Receive Date: 20040126
  Receipt Date: 20040112
  Transmission Date: 20041129
  Serious: Yes (Life-Threatening, Disabling)
  Sender: FDA-Public Use
  Company Number: 2004195117DE

PATIENT
  Age: 69 Year
  Sex: Male

DRUGS (1)
  1. BEXTRA [Suspect]
     Indication: ROTATOR CUFF SYNDROME
     Dosage: 20 MG, QD; ORAL
     Route: 048
     Dates: start: 20030821, end: 20030831

REACTIONS (1)
  - CEREBROVASCULAR ACCIDENT [None]
